FAERS Safety Report 8521084-5 (Version None)
Quarter: 2012Q3

REPORT INFORMATION
  Report Type: 
  Country: None (occurrence: None)
  Receive Date: 20120706
  Receipt Date: 20120627
  Transmission Date: 20120928
  Serious: Yes (Hospitalization)
  Sender: FDA-Public Use
  Company Number: DKLU1082683

PATIENT
  Age: 55 Day
  Sex: Female

DRUGS (3)
  1. SABRIL [Suspect]
     Indication: COMPLEX PARTIAL SEIZURES
     Dosage: 1750 MG MILLIGRAM(S), AM, ORAL 2000 MG MILLIGRAM(S), PM, ORAL
     Route: 048
     Dates: start: 20120401
  2. SABRIL [Suspect]
     Indication: COMPLEX PARTIAL SEIZURES
     Dosage: 1750 MG MILLIGRAM(S), AM, ORAL 2000 MG MILLIGRAM(S), PM, ORAL
     Route: 048
     Dates: start: 20120401
  3. THERAPENTIN (AMINO ACIDS NOS W/GABAPENTIN) [Concomitant]

REACTIONS (1)
  - MYOCLONIC EPILEPSY [None]
